FAERS Safety Report 10201627 (Version 3)
Quarter: 2014Q2

REPORT INFORMATION
  Report Type: Report from Study
  Country: TW (occurrence: TW)
  Receive Date: 20140528
  Receipt Date: 20140619
  Transmission Date: 20141212
  Serious: Yes (Other)
  Sender: FDA-Public Use
  Company Number: PHHY2014TW064841

PATIENT
  Age: 85 Year
  Sex: Female
  Weight: 38 kg

DRUGS (1)
  1. ACLASTA/ZOLEDRONATE [Suspect]
     Indication: OSTEOPOROSIS
     Dosage: 0.5 MG/ML, UNK
     Route: 041
     Dates: start: 20120424

REACTIONS (2)
  - Scapula fracture [Recovering/Resolving]
  - Fall [Recovering/Resolving]
